FAERS Safety Report 6425027-X (Version None)
Quarter: 2009Q4

REPORT INFORMATION
  Report Type: 
  Country: None (occurrence: None)
  Receive Date: 20091103
  Receipt Date: 20091022
  Transmission Date: 20100525
  Serious: Yes (Hospitalization)
  Sender: FDA-Public Use
  Company Number: GB-PFIZER INC-2006119932

PATIENT
  Age: 56 Year
  Sex: Female
  Weight: 48.6 kg

DRUGS (13)
  1. SUNITINIB MALATE [Suspect]
     Indication: RENAL CELL CARCINOMA
     Route: 048
     Dates: start: 20051216
  2. MILPAR [Concomitant]
     Route: 048
     Dates: start: 20050907
  3. PAMIDRONATE DISODIUM [Concomitant]
     Route: 042
     Dates: start: 20050101
  4. DEXAMETHASONE [Concomitant]
     Route: 048
  5. VOLTAREN [Concomitant]
     Route: 048
     Dates: start: 20051201
  6. TRAMADOL HCL [Concomitant]
     Route: 048
     Dates: start: 20050101
  7. ORAMORPH SR [Concomitant]
     Route: 048
     Dates: start: 20051201
  8. LANSOPRAZOLE [Concomitant]
     Route: 048
     Dates: start: 20050101
  9. CHLORHEXIDINE GLUCONATE [Concomitant]
     Route: 048
     Dates: start: 20060407
  10. METOCLOPRAMIDE [Concomitant]
     Route: 048
     Dates: start: 20060421
  11. SUCRALFATE [Concomitant]
     Route: 048
     Dates: start: 20060721
  12. SENNOSIDE B [Concomitant]
     Route: 048
     Dates: start: 20060721
  13. MEDROXYPROGESTERONE [Concomitant]
     Route: 048
     Dates: start: 20060929

REACTIONS (1)
  - EPILEPSY [None]
